FAERS Safety Report 23983935 (Version 4)
Quarter: 2025Q2

REPORT INFORMATION
  Report Type: Report from Study
  Country: US (occurrence: US)
  Receive Date: 20240618
  Receipt Date: 20250508
  Transmission Date: 20250716
  Serious: No
  Sender: AMGEN
  Company Number: US-AMGEN-USASP2024118440

PATIENT
  Age: 62 Year
  Sex: Female

DRUGS (1)
  1. TEPEZZA [Suspect]
     Active Substance: TEPROTUMUMAB-TRBW
     Indication: Endocrine ophthalmopathy
     Dosage: UNK, Q3WK, (1X Q3WK FOR 8 INFUSIONS)
     Route: 042
     Dates: start: 20240125, end: 20240711

REACTIONS (1)
  - Muscle spasms [Unknown]
